FAERS Safety Report 6010028-6 (Version None)
Quarter: 2008Q4

REPORT INFORMATION
  Report Type: 
  Country: None (occurrence: None)
  Receive Date: 20081218
  Receipt Date: 20081205
  Transmission Date: 20090506
  Serious: Yes (Other)
  Sender: FDA-Public Use
  Company Number: AU-PFIZER INC-2008153358

PATIENT

DRUGS (2)
  1. CHAMPIX [Suspect]
     Dosage: UNK
     Dates: start: 20081124, end: 20081101
  2. METHADONE [Concomitant]
     Dosage: UNK

REACTIONS (7)
  - COORDINATION ABNORMAL [None]
  - HEART RATE INCREASED [None]
  - HYPERHIDROSIS [None]
  - NAUSEA [None]
  - NEGATIVE THOUGHTS [None]
  - ROAD TRAFFIC ACCIDENT [None]
  - TREMOR [None]
